FAERS Safety Report 15397441 (Version 1)
Quarter: 2018Q3

REPORT INFORMATION
  Report Type: Spontaneous
  Country: US (occurrence: US)
  Receive Date: 20180911
  Receipt Date: 20180911
  Transmission Date: 20181010
  Serious: No
  Sender: FDA-Public Use
  Company Number: None

PATIENT
  Age: 61 Year
  Sex: Female

DRUGS (2)
  1. SIMVASTATIN. [Concomitant]
     Active Substance: SIMVASTATIN
  2. COSENTYX [Suspect]
     Active Substance: SECUKINUMAB
     Dates: start: 201806

REACTIONS (2)
  - Abdominal pain [None]
  - Hepatomegaly [None]

NARRATIVE: CASE EVENT DATE: 20180911
